FAERS Safety Report 5646088-1 (Version None)
Quarter: 2008Q1

REPORT INFORMATION
  Report Type: 
  Country: None (occurrence: None)
  Receive Date: 20080229
  Receipt Date: 20080227
  Transmission Date: 20080703
  Serious: Yes (Other)
  Sender: FDA-Public Use
  Company Number: GB-MERCK-0802GBR00109

PATIENT
  Age: 78 Year

DRUGS (1)
  1. ZOCOR [Suspect]
     Indication: LIPIDS INCREASED
     Route: 048
     Dates: start: 20050101

REACTIONS (2)
  - ALOPECIA [None]
  - DENTAL DISCOMFORT [None]
